FAERS Safety Report 4426592-4 (Version None)
Quarter: 2004Q3

REPORT INFORMATION
  Report Type: 
  Country: None (occurrence: None)
  Receive Date: 20040811
  Receipt Date: 20040727
  Transmission Date: 20050211
  Serious: Yes (Hospitalization)
  Sender: FDA-Public Use
  Company Number: FR-JNJFOC-20040707245

PATIENT
  Age: 24 Year
  Sex: Female

DRUGS (4)
  1. TRAMADOL HCL [Suspect]
     Indication: ENTHESOPATHY
     Dosage: 2 IN 1 DAY, ORAL
     Route: 048
     Dates: start: 20040615, end: 20040622
  2. KETOPROFEN [Suspect]
     Indication: ENTHESOPATHY
     Dosage: 300 MG, 1 IN 1 DAY, ORAL
     Route: 048
     Dates: start: 20040615, end: 20040622
  3. DAFLAGAN (PARACETAMOL) [Suspect]
     Indication: ENTHESOPATHY
     Dosage: 3 G, 1 IN 1 DAY, ORAL
     Route: 048
     Dates: start: 20040615
  4. LANSOPRAZOLE [Suspect]
     Indication: ENTHESOPATHY
     Dosage: ORAL
     Route: 048
     Dates: start: 20040615, end: 20040622

REACTIONS (5)
  - APHASIA [None]
  - CSF TEST ABNORMAL [None]
  - ELECTROENCEPHALOGRAM ABNORMAL [None]
  - HEADACHE [None]
  - NUCLEAR MAGNETIC RESONANCE IMAGING ABNORMAL [None]
